FAERS Safety Report 5026540-2 (Version None)
Quarter: 2006Q2

REPORT INFORMATION
  Report Type: 
  Country: None (occurrence: None)
  Receive Date: 20060615
  Receipt Date: 20060602
  Transmission Date: 20061013
  Serious: Yes (Congenital Anomaly)
  Sender: FDA-Public Use
  Company Number: DE-AVENTIS-200611632DE

PATIENT
  Sex: Male
  Weight: 3.37 kg

DRUGS (1)
  1. CLEXANE [Suspect]
     Indication: HYPERCOAGULATION
     Route: 064
     Dates: start: 20051013

REACTIONS (2)
  - DRUG EXPOSURE DURING PREGNANCY [None]
  - TOE DEFORMITY [None]
